FAERS Safety Report 21949493 (Version 3)
Quarter: 2024Q3

REPORT INFORMATION
  Report Type: Spontaneous
  Country: US (occurrence: US)
  Receive Date: 20230203
  Receipt Date: 20240816
  Transmission Date: 20241017
  Serious: No
  Sender: LUPIN
  Company Number: US-LUPIN PHARMACEUTICALS INC.-2023-00664

PATIENT

DRUGS (1)
  1. ALBUTEROL SULFATE [Suspect]
     Active Substance: ALBUTEROL SULFATE
     Indication: Dyspnoea
     Dosage: UNK UNK, QD (6 PUFFS A DAY)
     Dates: start: 20221230

REACTIONS (4)
  - Drug dose omission by device [Unknown]
  - Device defective [Unknown]
  - Wrong technique in product usage process [Unknown]
  - No adverse event [Unknown]
